FAERS Safety Report 6114759-9 (Version None)
Quarter: 2009Q1

REPORT INFORMATION
  Report Type: 
  Country: None (occurrence: None)
  Receive Date: 20090313
  Receipt Date: 20090310
  Transmission Date: 20090719
  Serious: Yes (Death, Other)
  Sender: FDA-Public Use
  Company Number: PHHY2009BR08650

PATIENT
  Age: 78 Year
  Sex: Male

DRUGS (1)
  1. DIOVAN [Suspect]
     Dosage: 80 MG

REACTIONS (5)
  - CARDIAC DISORDER [None]
  - DEATH [None]
  - DIABETES MELLITUS [None]
  - NEOPLASM MALIGNANT [None]
  - VASCULAR GRAFT [None]
